FAERS Safety Report 21834842 (Version 5)
Quarter: 2023Q1

REPORT INFORMATION
  Report Type: Spontaneous
  Country: GB (occurrence: GB)
  Receive Date: 20230108
  Receipt Date: 20230314
  Transmission Date: 20230417
  Serious: Yes (Hospitalization)
  Sender: FDA-Public Use
  Company Number: GB-BIOGEN-2023BI01179429

PATIENT
  Age: 54 Year
  Sex: Female

DRUGS (2)
  1. DALFAMPRIDINE [Suspect]
     Active Substance: DALFAMPRIDINE
     Indication: Gait disturbance
     Route: 050
     Dates: start: 2019
  2. DALFAMPRIDINE [Suspect]
     Active Substance: DALFAMPRIDINE
     Route: 050
     Dates: start: 2020

REACTIONS (8)
  - Fractured sacrum [Unknown]
  - Lumbar vertebral fracture [Unknown]
  - Muscular weakness [Unknown]
  - Pain in extremity [Unknown]
  - Fall [Recovered/Resolved]
  - Head injury [Unknown]
  - Product dose omission issue [Unknown]
  - Balance disorder [Unknown]

NARRATIVE: CASE EVENT DATE: 20221207
